FAERS Safety Report 6136991-0 (Version None)
Quarter: 2009Q1

REPORT INFORMATION
  Report Type: 
  Country: None (occurrence: None)
  Receive Date: 20090326
  Receipt Date: 20090326
  Transmission Date: 20090719
  Serious: Yes (Hospitalization)
  Sender: FDA-Public Use
  Company Number: None

PATIENT
  Sex: Female
  Weight: 59 kg

DRUGS (1)
  1. TEMOZOLOMIDE [Suspect]
     Dosage: 4680 MG

REACTIONS (2)
  - FEBRILE NEUTROPENIA [None]
  - PLATELET COUNT DECREASED [None]
